FAERS Safety Report 19995793 (Version 4)
Quarter: 2021Q4

REPORT INFORMATION
  Report Type: Spontaneous
  Country: DE (occurrence: DE)
  Receive Date: 20211025
  Receipt Date: 20211116
  Transmission Date: 20220303
  Serious: Yes (Hospitalization, Other)
  Sender: FDA-Public Use
  Company Number: None

PATIENT
  Age: 69 Year
  Sex: Female
  Weight: 74 kg

DRUGS (5)
  1. VENLAFAXINE [Suspect]
     Active Substance: VENLAFAXINE HYDROCHLORIDE
     Indication: Depression
     Dosage: 37.5 MILLIGRAM, QD/ START DATE: JUN-2019
     Route: 048
     Dates: start: 201906, end: 201912
  2. VENLAFAXINE [Suspect]
     Active Substance: VENLAFAXINE HYDROCHLORIDE
     Dosage: 75 MILLIGRAM, QD/ START DATE: JAN-2020
     Route: 048
     Dates: end: 202002
  3. VENLAFAXINE [Suspect]
     Active Substance: VENLAFAXINE HYDROCHLORIDE
     Dosage: UNK (START DATE: JUN-2019)
     Route: 048
     Dates: end: 202003
  4. VENLAFAXINE [Suspect]
     Active Substance: VENLAFAXINE HYDROCHLORIDE
     Dosage: 37.5 MILLIGRAM, QD/ START DATE: MAR-2020
     Route: 048
     Dates: end: 202003
  5. MIRTAZAPINE [Concomitant]
     Active Substance: MIRTAZAPINE
     Indication: Sleep disorder
     Dosage: 7.5 MILLIGRAM, QD
     Route: 048
     Dates: start: 201907, end: 202003

REACTIONS (9)
  - Mobility decreased [Unknown]
  - Inflammation [Unknown]
  - Bone disorder [Not Recovered/Not Resolved]
  - Pain [Unknown]
  - Coagulopathy [Recovering/Resolving]
  - Haemarthrosis [Recovered/Resolved with Sequelae]
  - Cartilage injury [Not Recovered/Not Resolved]
  - Joint dislocation [Not Recovered/Not Resolved]
  - Pain in extremity [Unknown]

NARRATIVE: CASE EVENT DATE: 20190901
